FAERS Safety Report 6658730-7 (Version None)
Quarter: 2010Q1

REPORT INFORMATION
  Report Type: 
  Country: None (occurrence: None)
  Receive Date: 20100330
  Receipt Date: 20100322
  Transmission Date: 20100710
  Serious: Yes (Hospitalization)
  Sender: FDA-Public Use
  Company Number: PHHO2010IT04572

PATIENT
  Sex: Male
  Weight: 92 kg

DRUGS (4)
  1. DIOVAN T30230+CAPS [Suspect]
     Indication: HYPERTENSION
  2. BENAZEPRIL T25892+TAB [Suspect]
     Indication: HYPERTENSION
  3. LASIX [Concomitant]
  4. TOTALIP [Concomitant]

REACTIONS (6)
  - BLOOD CREATININE INCREASED [None]
  - PERIPHERAL ARTERIAL OCCLUSIVE DISEASE [None]
  - PYREXIA [None]
  - RENAL IMPAIRMENT [None]
  - SKIN ULCER [None]
  - WOUND SEPSIS [None]
